FAERS Safety Report 10742596 (Version 2)
Quarter: 2015Q3

REPORT INFORMATION
  Report Type: Report from Study
  Country: BE (occurrence: BE)
  Receive Date: 20150127
  Receipt Date: 20150730
  Transmission Date: 20151125
  Serious: Yes (Hospitalization)
  Sender: FDA-Public Use
  Company Number: BE-ABBVIE-14P-013-1295744-00

PATIENT
  Sex: Female

DRUGS (3)
  1. DUODOPA [Suspect]
     Active Substance: CARBIDOPA\LEVODOPA
     Indication: PARKINSON^S DISEASE
     Dosage: AM = 6 ML, CD = 4 ML/H DURING 16H, ED = 4 ML
     Route: 050
     Dates: start: 20140714, end: 20140717
  2. DUODOPA [Suspect]
     Active Substance: CARBIDOPA\LEVODOPA
     Dosage: DOSE CONTINUOUSLY MONITORED AND ADAPTED
     Route: 050
     Dates: start: 20140717, end: 20140819
  3. DUODOPA [Suspect]
     Active Substance: CARBIDOPA\LEVODOPA
     Dosage: AM = 6 ML, CD = 5.8 ML/H DURING 16H, ED = 5 ML
     Route: 050
     Dates: start: 20140819

REACTIONS (3)
  - Device dislocation [Unknown]
  - Hip fracture [Unknown]
  - Inflammation [Unknown]
